FAERS Safety Report 11915577 (Version 1)
Quarter: 2016Q1

REPORT INFORMATION
  Report Type: Spontaneous
  Country: US (occurrence: None)
  Receive Date: 20160113
  Receipt Date: 20160113
  Transmission Date: 20160526
  Serious: No
  Sender: FDA-Public Use
  Company Number: None

PATIENT
  Age: 67 Year
  Sex: Female

DRUGS (1)
  1. STIVARGA [Suspect]
     Active Substance: REGORAFENIB
     Indication: PRODUCT USED FOR UNKNOWN INDICATION
     Dosage: 160 MG, DAILY X21D, 7 D OFF
     Route: 048
     Dates: start: 20151105

REACTIONS (3)
  - Mental disorder [None]
  - Tremor [None]
  - Visual impairment [None]

NARRATIVE: CASE EVENT DATE: 20151225
